FAERS Safety Report 5028994-4 (Version None)
Quarter: 2006Q2

REPORT INFORMATION
  Report Type: 
  Country: None (occurrence: None)
  Receive Date: 20060619
  Receipt Date: 20060607
  Transmission Date: 20061013
  Serious: Yes (Hospitalization)
  Sender: FDA-Public Use
  Company Number: PHEH2006US07596

PATIENT
  Age: 84 Year
  Sex: Female

DRUGS (10)
  1. GLEEVEC [Suspect]
     Indication: CHRONIC MYELOID LEUKAEMIA
     Dosage: 400 MG, QD
     Route: 048
     Dates: start: 20060509, end: 20060501
  2. LEXAPRO [Concomitant]
  3. RISPERDAL [Concomitant]
  4. SYNTHROID [Concomitant]
  5. HYDROCHLOROTHIAZIDE [Concomitant]
  6. TOPROL-XL [Concomitant]
  7. MIRTAZAPINE [Concomitant]
  8. ALLOPURINOL [Concomitant]
  9. POTASSIUM CHLORIDE [Concomitant]
  10. CIPRO [Concomitant]

REACTIONS (3)
  - BLOOD CREATININE INCREASED [None]
  - URINARY TRACT INFECTION [None]
  - WHITE BLOOD CELL COUNT DECREASED [None]
